FAERS Safety Report 21300041 (Version 1)
Quarter: 2022Q3

REPORT INFORMATION
  Report Type: Spontaneous
  Country: RU (occurrence: RU)
  Receive Date: 20220906
  Receipt Date: 20220906
  Transmission Date: 20221027
  Serious: Yes (Other)
  Sender: FDA-Public Use
  Company Number: RU-WOODWARD-2022-RU-000032

PATIENT
  Age: 77 Year
  Sex: Male

DRUGS (1)
  1. DUTASTERIDE\TAMSULOSIN HYDROCHLORIDE [Suspect]
     Active Substance: DUTASTERIDE\TAMSULOSIN HYDROCHLORIDE
     Indication: Prostatomegaly
     Dosage: 1 DF, QD, DUODART N 90, 1 CAPSULE AT NIGHT; UNKNOWN
     Route: 065

REACTIONS (2)
  - Prostatomegaly [Unknown]
  - Condition aggravated [Unknown]

NARRATIVE: CASE EVENT DATE: 20220820
